FAERS Safety Report 9168684 (Version 1)
Quarter: 2013Q1

REPORT INFORMATION
  Report Type: Spontaneous
  Country: GB (occurrence: None)
  Receive Date: 20130308
  Receipt Date: 20130308
  Transmission Date: 20140127
  Serious: Yes (Hospitalization, Other)
  Sender: FDA-Public Use
  Company Number: 2013P1002840

PATIENT
  Age: 44 Year
  Sex: Male

DRUGS (1)
  1. CIPROFLOXACIN [Suspect]
     Indication: DIARRHOEA HAEMORRHAGIC
     Route: 048

REACTIONS (6)
  - Haemolytic uraemic syndrome [None]
  - Grand mal convulsion [None]
  - Renal failure acute [None]
  - Haemofiltration [None]
  - Escherichia infection [None]
  - Thrombocytopenia [None]
